FAERS Safety Report 20056753 (Version 1)
Quarter: 2021Q4

REPORT INFORMATION
  Report Type: Spontaneous
  Country: JM (occurrence: JM)
  Receive Date: 20211111
  Receipt Date: 20211111
  Transmission Date: 20220304
  Serious: Yes (Other)
  Sender: FDA-Public Use
  Company Number: JM-BoehringerIngelheim-2021-BI-136927

PATIENT
  Age: 73 Year
  Sex: Female

DRUGS (1)
  1. PRADAXA [Suspect]
     Active Substance: DABIGATRAN ETEXILATE MESYLATE
     Indication: Product used for unknown indication
     Dosage: 110 MG TWICE DAILY

REACTIONS (5)
  - Seizure [Unknown]
  - Cerebrovascular accident [Unknown]
  - Tongue biting [Unknown]
  - Hypoglycaemia [Unknown]
  - Haemorrhage [Not Recovered/Not Resolved]
